FAERS Safety Report 9473274 (Version 2)
Quarter: 2013Q3

REPORT INFORMATION
  Report Type: Spontaneous
  Country: US (occurrence: US)
  Receive Date: 20130823
  Receipt Date: 20130823
  Transmission Date: 20140515
  Serious: No
  Sender: FDA-Public Use
  Company Number: US-GALDERMA-US-GDP-12414015

PATIENT
  Sex: Female
  Weight: 136 kg

DRUGS (13)
  1. METROGEL [Suspect]
     Indication: ROSACEA
     Route: 061
     Dates: start: 1994, end: 201205
  2. METROGEL [Suspect]
     Route: 061
     Dates: start: 201205, end: 201205
  3. LANTUS [Concomitant]
     Indication: DIABETES MELLITUS
     Route: 058
  4. NOVOLOG FLEX PEN [Concomitant]
     Indication: DIABETES MELLITUS
     Route: 058
  5. DETROL LA [Concomitant]
     Indication: HYPERTONIC BLADDER
     Route: 048
  6. METFORMIN [Concomitant]
  7. VICTOZA [Concomitant]
  8. ACIPHEX [Concomitant]
  9. LISINOPRIL [Concomitant]
  10. ISOSORB [Concomitant]
  11. FUROSEMIDE [Concomitant]
  12. OMEGA 3 FISH OIL [Concomitant]
  13. ASPIRIN [Concomitant]

REACTIONS (3)
  - Acne [Not Recovered/Not Resolved]
  - Drug effect decreased [None]
  - Off label use [None]
